FAERS Safety Report 21783882 (Version 1)
Quarter: 2022Q4

REPORT INFORMATION
  Report Type: Spontaneous
  Country: US (occurrence: US)
  Receive Date: 20221227
  Receipt Date: 20221227
  Transmission Date: 20230112
  Serious: No
  Sender: FDA-Public Use
  Company Number: US-FreseniusKabi-FK202217651

PATIENT

DRUGS (1)
  1. SENSORCAINE WITH EPINEPHRINE [Suspect]
     Active Substance: BUPIVACAINE HYDROCHLORIDE\EPINEPHRINE BITARTRATE
     Indication: Product used for unknown indication
     Dosage: 1 :200,000, MULTI-DOSE VIAL 50 ML, POTENCY 2.5 MG IN 1 ML, .005 MG IN 1 ML.

REACTIONS (1)
  - Drug ineffective [Unknown]
